FAERS Safety Report 8620744-5 (Version None)
Quarter: 2012Q3

REPORT INFORMATION
  Report Type: 
  Country: None (occurrence: None)
  Receive Date: 20120824
  Receipt Date: 20120815
  Transmission Date: 20120928
  Serious: Yes (Other)
  Sender: FDA-Public Use
  Company Number: GB-ALLERGAN-1211194US

PATIENT
  Age: 65 Year
  Sex: Female
  Weight: 48 kg

DRUGS (3)
  1. OFTAQUIX [Concomitant]
  2. ACULAR [Suspect]
     Dosage: 1 DF, QID
     Route: 047
  3. MAXIDEX [Concomitant]

REACTIONS (2)
  - LACRIMATION INCREASED [None]
  - EYE PAIN [None]
